FAERS Safety Report 10903911 (Version 1)
Quarter: 2015Q1

REPORT INFORMATION
  Report Type: Report from Study
  Country: US (occurrence: US)
  Receive Date: 20150311
  Receipt Date: 20150311
  Transmission Date: 20150721
  Serious: Yes (Other)
  Sender: FDA-Public Use
  Company Number: US-JNJFOC-20150302938

PATIENT
  Sex: Female
  Weight: 83.92 kg

DRUGS (6)
  1. REMICADE [Suspect]
     Active Substance: INFLIXIMAB
     Indication: RHEUMATOID ARTHRITIS
     Route: 042
     Dates: start: 2013
  2. METHOTREXATE [Concomitant]
     Active Substance: METHOTREXATE
     Indication: ARTHRITIS
     Route: 065
     Dates: start: 2013
  3. METHOTREXATE [Concomitant]
     Active Substance: METHOTREXATE
     Indication: SWELLING
     Route: 065
     Dates: start: 2013
  4. INFLUENZA SHOT [Suspect]
     Active Substance: INFLUENZA VIRUS VACCINE
     Indication: PRODUCT USED FOR UNKNOWN INDICATION
     Route: 065
     Dates: start: 2014
  5. CALCIUM [Concomitant]
     Active Substance: CALCIUM
     Route: 065
     Dates: start: 2013
  6. REMICADE [Suspect]
     Active Substance: INFLIXIMAB
     Indication: RHEUMATOID ARTHRITIS
     Route: 042

REACTIONS (6)
  - Rotator cuff syndrome [Recovered/Resolved]
  - Nasopharyngitis [Recovered/Resolved]
  - Pneumonia [Recovered/Resolved]
  - Gastroenteritis viral [Recovered/Resolved]
  - Food poisoning [Recovered/Resolved]
  - Rotator cuff syndrome [Not Recovered/Not Resolved]

NARRATIVE: CASE EVENT DATE: 2014
